FAERS Safety Report 26060974 (Version 3)
Quarter: 2025Q4

REPORT INFORMATION
  Report Type: Spontaneous
  Country: BR (occurrence: BR)
  Receive Date: 20251118
  Receipt Date: 20251209
  Transmission Date: 20260118
  Serious: Yes (Other)
  Sender: BOEHRINGER INGELHEIM
  Company Number: BR-BoehringerIngelheim-2025-BI-108086

PATIENT
  Age: 54 Year
  Sex: Female
  Weight: 64 kg

DRUGS (11)
  1. NINTEDANIB [Suspect]
     Active Substance: NINTEDANIB
     Indication: Pulmonary fibrosis
  2. NINTEDANIB [Suspect]
     Active Substance: NINTEDANIB
     Indication: Interstitial lung disease
  3. MYCOPHENOLATE MOFETIL [Suspect]
     Active Substance: MYCOPHENOLATE MOFETIL
     Indication: Product used for unknown indication
  4. INFLUENZA VIRUS VACCINE [Concomitant]
     Active Substance: INFLUENZA VIRUS VACCINE
     Indication: Prophylaxis
     Dates: start: 2021, end: 2021
  5. Rinosoro [Concomitant]
     Indication: Product used for unknown indication
     Dosage: THREE TIMES A DAY
  6. Tavaflox D10 [Concomitant]
     Indication: Product used for unknown indication
  7. DOMPERIDONE [Concomitant]
     Active Substance: DOMPERIDONE
     Indication: Product used for unknown indication
  8. Sildenafila [Concomitant]
     Indication: Product used for unknown indication
  9. DOSS [Concomitant]
     Active Substance: DOCUSATE SODIUM
     Indication: Product used for unknown indication
     Dosage: FORM STRENGTH: 7000(UNIT OF MEASUREMENT NOT SPECIFIED).
  10. COVID-19 vaccine [Concomitant]
     Indication: COVID-19 prophylaxis
     Dosage: 3 DOSES.
  11. Pneumo23 vaccine [Concomitant]
     Indication: Product used for unknown indication

REACTIONS (9)
  - Hepatotoxicity [Recovered/Resolved]
  - Respiratory failure [Unknown]
  - Mitral valve incompetence [Unknown]
  - Forced vital capacity decreased [Unknown]
  - Lung diffusion test decreased [Unknown]
  - Obstructive airways disorder [Unknown]
  - Gastrooesophageal reflux disease [Unknown]
  - Diarrhoea [Not Recovered/Not Resolved]
  - Pulmonary function test abnormal [Unknown]

NARRATIVE: CASE EVENT DATE: 20180101
